FAERS Safety Report 6771173-0 (Version None)
Quarter: 2010Q2

REPORT INFORMATION
  Report Type: 
  Country: None (occurrence: None)
  Receive Date: 20100616
  Receipt Date: 20100602
  Transmission Date: 20101027
  Serious: Yes (Death, Life-Threatening)
  Sender: FDA-Public Use
  Company Number: PHHY2010JP36718

PATIENT
  Sex: Male

DRUGS (14)
  1. ICL670A ICL+DISTAB [Suspect]
     Indication: MYELODYSPLASTIC SYNDROME
     Dosage: 1125MG DAILY
     Route: 048
     Dates: start: 20080702, end: 20080819
  2. ICL670A ICL+DISTAB [Suspect]
     Dosage: 500MG DAILY
     Route: 048
     Dates: start: 20080927, end: 20090602
  3. VOLTAREN [Suspect]
     Indication: MYELOFIBROSIS
     Dosage: 12.5MG
     Route: 054
     Dates: start: 20090602, end: 20090602
  4. DECADRON [Concomitant]
     Indication: MYELOFIBROSIS
     Dosage: 0.25MG
     Route: 048
     Dates: start: 20080702, end: 20090602
  5. ITOROL [Concomitant]
     Dosage: 40MG
     Route: 048
     Dates: start: 20080702, end: 20090602
  6. TAKEPRON [Concomitant]
     Dosage: 15MG
     Route: 048
     Dates: start: 20080702, end: 20090602
  7. LASIX [Concomitant]
     Dosage: 40MG
     Route: 048
     Dates: start: 20080702, end: 20090602
  8. ALOSENN [Concomitant]
     Dosage: 1.0G
     Route: 048
     Dates: start: 20080702, end: 20090602
  9. HALCION [Concomitant]
     Dosage: 0.125MG
     Route: 048
     Dates: start: 20080710, end: 20090602
  10. NOVORAPID [Concomitant]
     Dosage: UNK
     Dates: start: 20080730, end: 20090602
  11. CRAVIT [Concomitant]
     Dosage: 200MG
     Route: 048
     Dates: start: 20080704, end: 20081104
  12. GRAN [Concomitant]
     Dosage: 150UG
     Route: 042
     Dates: start: 20080708, end: 20081224
  13. LOXOPROFEN SODIUM [Concomitant]
     Dosage: 60MG
     Route: 048
     Dates: start: 20080918, end: 20081028
  14. SELBEX [Concomitant]
     Dosage: 50MG
     Route: 048
     Dates: start: 20080918, end: 20081028

REACTIONS (2)
  - ANAPHYLACTIC SHOCK [None]
  - SEPTIC SHOCK [None]
